FAERS Safety Report 18861092 (Version 2)
Quarter: 2021Q1

REPORT INFORMATION
  Report Type: Report from Study
  Country: US (occurrence: US)
  Receive Date: 20210208
  Receipt Date: 20210302
  Transmission Date: 20210420
  Serious: Yes (Other)
  Sender: FDA-Public Use
  Company Number: NVSC2021US019753

PATIENT
  Sex: Female

DRUGS (2)
  1. ENTRESTO [Suspect]
     Active Substance: SACUBITRIL\VALSARTAN
     Indication: CARDIAC FAILURE
     Dosage: 100 MG, BID(49/51MG)
     Route: 048
     Dates: start: 2018
  2. CELEBREX [Suspect]
     Active Substance: CELECOXIB
     Indication: PRODUCT USED FOR UNKNOWN INDICATION
     Dosage: UNK
     Route: 065

REACTIONS (6)
  - Enteritis infectious [Unknown]
  - Burning sensation [Unknown]
  - Osteoarthritis [Unknown]
  - Back pain [Unknown]
  - Peripheral swelling [Recovering/Resolving]
  - Therapeutic response unexpected [Recovering/Resolving]
